FAERS Safety Report 4509821-8 (Version None)
Quarter: 2004Q4

REPORT INFORMATION
  Report Type: 
  Country: None (occurrence: None)
  Receive Date: 20041119
  Receipt Date: 20041102
  Transmission Date: 20050328
  Serious: Yes (Hospitalization, Other)
  Sender: FDA-Public Use
  Company Number: US_0406103889

PATIENT
  Age: 6 Year
  Sex: Male
  Weight: 20 kg

DRUGS (3)
  1. HUMATROPE [Suspect]
     Indication: GROWTH HORMONE DEFICIENCY
     Dosage: 1 MG/6 WEEK
     Dates: start: 20040304, end: 20040623
  2. COFTEF (HYDROCORTISONE ACETATE) [Concomitant]
  3. SYNTHROID [Concomitant]

REACTIONS (2)
  - BONE MARROW TRANSPLANT [None]
  - NEOPLASM RECURRENCE [None]
